FAERS Safety Report 6583968-7 (Version None)
Quarter: 2010Q1

REPORT INFORMATION
  Report Type: 
  Country: None (occurrence: None)
  Receive Date: 20100213
  Receipt Date: 20100213
  Transmission Date: 20100710
  Serious: Yes (Death)
  Sender: FDA-Public Use
  Company Number: None

PATIENT
  Age: 89 Year
  Sex: Male
  Weight: 76.2043 kg

DRUGS (1)
  1. CYANOCOBALAMIN [Suspect]
     Indication: ASTHENIA
     Dosage: 30ML 0MULTI DOSE VIAL- IM
     Route: 030
     Dates: start: 20091217, end: 20091217

REACTIONS (2)
  - EXPIRED DRUG ADMINISTERED [None]
  - MYOCARDIAL INFARCTION [None]
